FAERS Safety Report 4690459-7 (Version None)
Quarter: 2005Q2

REPORT INFORMATION
  Report Type: 
  Country: None (occurrence: None)
  Receive Date: 20050615
  Receipt Date: 20050603
  Transmission Date: 20051028
  Serious: Yes (Death, Hospitalization, Other)
  Sender: FDA-Public Use
  Company Number: US-BRISTOL-MYERS SQUIBB COMPANY-12993390

PATIENT
  Age: 20 Year
  Sex: Male

DRUGS (1)
  1. ABILIFY [Suspect]
     Indication: SCHIZOPHRENIA

REACTIONS (10)
  - APNOEA [None]
  - APPENDICITIS [None]
  - BRADYCARDIA [None]
  - CARBON DIOXIDE DECREASED [None]
  - DEATH [None]
  - HYPOXIA [None]
  - NAUSEA [None]
  - PERITONITIS [None]
  - RESPIRATORY DISTRESS [None]
  - TACHYCARDIA [None]
